FAERS Safety Report 6595282-4 (Version None)
Quarter: 2010Q1

REPORT INFORMATION
  Report Type: 
  Country: None (occurrence: None)
  Receive Date: 20100212
  Receipt Date: 20100203
  Transmission Date: 20100710
  Serious: Yes (Hospitalization)
  Sender: FDA-Public Use
  Company Number: 496929

PATIENT
  Age: 39 Year
  Sex: Female

DRUGS (5)
  1. FENTANYL CITRATE [Suspect]
     Indication: SEDATIVE THERAPY
     Dosage: 2 DOSES OF 25 MCG 3 MIN APART,
  2. SERTRALINE HCL [Suspect]
     Indication: DRUG USE FOR UNKNOWN INDICATION
     Dosage: 100 MG,
  3. OCTREOTIDE ACETATE [Concomitant]
  4. PANTOPRAZOLE [Concomitant]
  5. MIDAZOLAM HCL [Concomitant]

REACTIONS (7)
  - AMMONIA INCREASED [None]
  - CIRRHOSIS ALCOHOLIC [None]
  - DRUG INTERACTION [None]
  - MALLORY-WEISS SYNDROME [None]
  - RHABDOMYOLYSIS [None]
  - SEROTONIN SYNDROME [None]
  - VARICES OESOPHAGEAL [None]
